FAERS Safety Report 6247199-2 (Version None)
Quarter: 2009Q2

REPORT INFORMATION
  Report Type: 
  Country: None (occurrence: None)
  Receive Date: 20090624
  Receipt Date: 20090624
  Transmission Date: 20091009
  Serious: Yes (Hospitalization)
  Sender: FDA-Public Use
  Company Number: None

PATIENT
  Age: 60 Year
  Sex: Female
  Weight: 59 kg

DRUGS (1)
  1. BACTRIM DS [Suspect]
     Indication: INFECTED SKIN ULCER
     Dosage: PO OVER 1 YEAR
     Route: 048

REACTIONS (1)
  - MENINGITIS [None]
